FAERS Safety Report 8146289-7 (Version None)
Quarter: 2012Q1

REPORT INFORMATION
  Report Type: 
  Country: None (occurrence: None)
  Receive Date: 20120217
  Receipt Date: 20111220
  Transmission Date: 20120608
  Serious: No
  Sender: FDA-Public Use
  Company Number: US-ABBOTT-11P-163-0885007-00

PATIENT
  Sex: Male
  Weight: 127.12 kg

DRUGS (6)
  1. SIMCOR [Suspect]
     Dosage: 500/20MG X 2 AT BEDTIME
     Route: 048
     Dates: start: 20111001, end: 20111001
  2. SIMCOR [Suspect]
     Indication: PRODUCT USED FOR UNKNOWN INDICATION
     Dosage: 500/20MG AT BEDTIME
     Route: 048
     Dates: start: 20110601, end: 20111001
  3. SIMCOR [Suspect]
     Dosage: 500/20MG AT BEDTIME
     Route: 048
     Dates: start: 20111214
  4. LISINOPRIL [Concomitant]
     Indication: PRODUCT USED FOR UNKNOWN INDICATION
     Route: 048
  5. ASPIRIN [Concomitant]
     Indication: PRODUCT USED FOR UNKNOWN INDICATION
     Dosage: 30 MINUTES PRIOR TO SIMCOR DOSE
     Route: 048
  6. 2 UNKNOWN DIABETIC MEDICATIONS [Concomitant]
     Indication: PRODUCT USED FOR UNKNOWN INDICATION
     Route: 048

REACTIONS (3)
  - PARAESTHESIA [None]
  - NERVOUSNESS [None]
  - ABDOMINAL PAIN [None]
